FAERS Safety Report 8446072-9 (Version None)
Quarter: 2012Q2

REPORT INFORMATION
  Report Type: 
  Country: None (occurrence: None)
  Receive Date: 20120618
  Receipt Date: 20120608
  Transmission Date: 20120825
  Serious: Yes (Other)
  Sender: FDA-Public Use
  Company Number: JP-EISAI INC-E7389-02554-CLI-JP

PATIENT
  Sex: Female
  Weight: 64 kg

DRUGS (5)
  1. HALAVEN [Suspect]
     Indication: BREAST CANCER RECURRENT
     Route: 041
     Dates: start: 20111213, end: 20120327
  2. ZOMETA [Concomitant]
     Indication: METASTASES TO BONE
     Route: 042
  3. HALAVEN [Suspect]
     Indication: METASTASES TO LYMPH NODES
     Route: 041
     Dates: start: 20111025, end: 20110101
  4. TRAMADOL HYDROCHLORIDE [Concomitant]
     Route: 048
  5. PROCHLORPERAZINE [Concomitant]
     Route: 048

REACTIONS (1)
  - DERMATITIS EXFOLIATIVE [None]
